FAERS Safety Report 7834024-9 (Version None)
Quarter: 2011Q4

REPORT INFORMATION
  Report Type: 
  Country: None (occurrence: None)
  Receive Date: 20111024
  Receipt Date: 20111013
  Transmission Date: 20120403
  Serious: Yes (Other)
  Sender: FDA-Public Use
  Company Number: CA-JNJFOC-20111006734

PATIENT
  Sex: Female
  Weight: 74 kg

DRUGS (5)
  1. ASACOL [Concomitant]
     Route: 048
     Dates: start: 20111007
  2. REMICADE [Suspect]
     Indication: CROHN'S DISEASE
     Route: 042
     Dates: start: 20111013
  3. REMICADE [Suspect]
     Route: 042
     Dates: start: 20110512
  4. METHOTREXATE [Concomitant]
     Route: 065
     Dates: end: 20111003
  5. ASACOL [Concomitant]
     Route: 048
     Dates: end: 20110901

REACTIONS (3)
  - LIPASE INCREASED [None]
  - MALAISE [None]
  - ABDOMINAL PAIN [None]
